FAERS Safety Report 9210564 (Version 2)
Quarter: 2013Q2

REPORT INFORMATION
  Report Type: Spontaneous
  Country: DE (occurrence: DE)
  Receive Date: 20130404
  Receipt Date: 20130513
  Transmission Date: 20140414
  Serious: Yes (Hospitalization)
  Sender: FDA-Public Use
  Company Number: DE-BAXTER-2013BAX011546

PATIENT
  Age: 7 Year
  Sex: Male
  Weight: 22 kg

DRUGS (32)
  1. FLUCONAZOL REDIBAG 400 MG/200 ML INFUSIONSL?SUNG [Suspect]
     Indication: URINARY TRACT INFECTION FUNGAL
     Route: 042
     Dates: start: 20110429, end: 20110516
  2. FLUCONAZOL REDIBAG 400 MG/200 ML INFUSIONSL?SUNG [Suspect]
     Route: 042
     Dates: start: 20110525
  3. SANDIMMUN OPTORAL [Suspect]
     Indication: RENAL TRANSPLANT
     Dosage: 80-0-75
     Route: 048
     Dates: start: 20110413, end: 20110531
  4. SANDIMMUN OPTORAL [Suspect]
     Dosage: 80-0-70
     Route: 048
     Dates: start: 20110515, end: 20110515
  5. SANDIMMUN OPTORAL [Suspect]
     Dosage: 70-0-70
     Route: 048
     Dates: start: 20110516, end: 20110516
  6. SANDIMMUN OPTORAL [Suspect]
     Dosage: 70-0-50
     Route: 048
     Dates: start: 20110517, end: 20110517
  7. SANDIMMUN OPTORAL [Suspect]
     Dosage: 60-0-65
     Route: 048
     Dates: start: 20110518, end: 20110518
  8. SANDIMMUN OPTORAL [Suspect]
     Dosage: 65-0-65
     Route: 048
     Dates: start: 20110519, end: 20110519
  9. SANDIMMUN OPTORAL [Suspect]
     Dosage: 65-0-80
     Route: 048
     Dates: start: 20110520, end: 20110520
  10. SANDIMMUN OPTORAL [Suspect]
     Dosage: 80-0-75
     Route: 048
     Dates: start: 20110521, end: 20110521
  11. SANDIMMUN OPTORAL [Suspect]
     Dosage: 75-0-100
     Route: 048
     Dates: start: 20110522, end: 20110522
  12. SANDIMMUN OPTORAL [Suspect]
     Dosage: 80-0-120
     Route: 048
     Dates: start: 20110523, end: 20110523
  13. SANDIMMUN OPTORAL [Suspect]
     Dosage: 100-0-100
     Route: 048
     Dates: start: 20110524, end: 20110524
  14. CYCLOSPORINE [Suspect]
     Indication: IMMUNOSUPPRESSANT DRUG THERAPY
     Route: 065
     Dates: end: 20110531
  15. FLUCONAZOLE [Concomitant]
     Indication: URINARY TRACT INFECTION FUNGAL
     Route: 042
     Dates: start: 20110425
  16. CELLCEPT [Concomitant]
     Indication: PRODUCT USED FOR UNKNOWN INDICATION
     Route: 048
     Dates: start: 20110413
  17. OMEPRAZOL [Concomitant]
     Indication: PRODUCT USED FOR UNKNOWN INDICATION
     Route: 048
     Dates: start: 20110413
  18. NABIC 8.4% [Concomitant]
     Indication: PRODUCT USED FOR UNKNOWN INDICATION
     Route: 048
     Dates: start: 20110512
  19. KEPINOL [Concomitant]
     Indication: PRODUCT USED FOR UNKNOWN INDICATION
     Route: 048
     Dates: start: 20110413
  20. ACICLOVIR [Concomitant]
     Indication: PRODUCT USED FOR UNKNOWN INDICATION
     Route: 048
     Dates: start: 20110520
  21. NEORECORMON [Concomitant]
     Indication: PRODUCT USED FOR UNKNOWN INDICATION
     Route: 042
     Dates: start: 200801
  22. CEFUROXIM [Concomitant]
     Indication: PRODUCT USED FOR UNKNOWN INDICATION
     Route: 042
     Dates: start: 20110413, end: 20110522
  23. DECORTIN [Concomitant]
     Indication: PRODUCT USED FOR UNKNOWN INDICATION
     Route: 048
     Dates: start: 20110413
  24. DECORTIN [Concomitant]
     Route: 048
     Dates: start: 20110520
  25. DORMICUM [Concomitant]
     Indication: PRODUCT USED FOR UNKNOWN INDICATION
     Route: 042
     Dates: start: 20110521, end: 20110521
  26. DORMICUM [Concomitant]
     Route: 042
     Dates: start: 20110522, end: 20110522
  27. KETANEST [Concomitant]
     Indication: PRODUCT USED FOR UNKNOWN INDICATION
     Route: 042
     Dates: start: 20110521, end: 20110521
  28. KETANEST [Concomitant]
     Route: 042
     Dates: start: 20110522, end: 20110522
  29. METAMIZOL [Concomitant]
     Indication: PRODUCT USED FOR UNKNOWN INDICATION
     Route: 042
     Dates: start: 20110522, end: 20110522
  30. PERFALGAN [Concomitant]
     Indication: PRODUCT USED FOR UNKNOWN INDICATION
     Route: 042
     Dates: start: 20110522, end: 20110522
  31. LASIX [Concomitant]
     Indication: PRODUCT USED FOR UNKNOWN INDICATION
     Route: 042
     Dates: start: 20110521, end: 20110521
  32. TACROLIMUS [Concomitant]
     Indication: IMMUNOSUPPRESSANT DRUG THERAPY
     Dosage: 1.6-0-1.6
     Route: 065
     Dates: start: 20110531

REACTIONS (2)
  - Disturbance in attention [Recovered/Resolved]
  - Encephalitis [Recovered/Resolved]
